FAERS Safety Report 11106191 (Version 1)
Quarter: 2015Q2

REPORT INFORMATION
  Report Type: Spontaneous
  Country: US (occurrence: US)
  Receive Date: 20150512
  Receipt Date: 20150512
  Transmission Date: 20150821
  Serious: Yes (Death, Hospitalization)
  Sender: FDA-Public Use
  Company Number: US-BEH-2012033971

PATIENT
  Age: 49 Year
  Sex: Male

DRUGS (2)
  1. INTRAVENOUS IMMUNOGLOBULIN [Suspect]
     Active Substance: HUMAN IMMUNOGLOBULIN G
     Indication: MYELITIS TRANSVERSE
     Route: 042
  2. CORTICOSTEROIDS [Suspect]
     Active Substance: CORTICOSTEROID NOS
     Indication: MYELITIS TRANSVERSE

REACTIONS (6)
  - Motor dysfunction [Unknown]
  - Respiratory disorder [Fatal]
  - Myelitis transverse [Unknown]
  - Glioblastoma multiforme [Fatal]
  - Paraesthesia [Unknown]
  - Drug ineffective for unapproved indication [Unknown]
